FAERS Safety Report 7564631-2 (Version None)
Quarter: 2011Q2

REPORT INFORMATION
  Report Type: 
  Country: None (occurrence: None)
  Receive Date: 20110622
  Receipt Date: 20100812
  Transmission Date: 20111010
  Serious: Yes (Other)
  Sender: FDA-Public Use
  Company Number: US-MYLANLABS-2010S1013038

PATIENT
  Age: 49 Year
  Sex: Male
  Weight: 102.97 kg

DRUGS (7)
  1. CLOZAPINE [Suspect]
     Indication: SCHIZOPHRENIA
     Route: 048
     Dates: start: 20070101, end: 20070101
  2. HALDOL DECONATE [Concomitant]
     Route: 030
  3. GEODON [Concomitant]
  4. AMITRIPTYLINE HCL [Concomitant]
  5. CLOZAPINE [Suspect]
     Route: 048
     Dates: start: 20100616, end: 20100601
  6. CLOZAPINE [Suspect]
     Route: 048
     Dates: start: 20100601, end: 20100702
  7. DEPAKOTE ER [Concomitant]

REACTIONS (1)
  - GRANULOCYTOPENIA [None]
